FAERS Safety Report 5062874-3 (Version None)
Quarter: 2006Q3

REPORT INFORMATION
  Report Type: 
  Country: None (occurrence: None)
  Receive Date: 20060724
  Receipt Date: 20060713
  Transmission Date: 20061208
  Serious: Yes (Other)
  Sender: FDA-Public Use
  Company Number: CHNY2006BR02122

PATIENT
  Age: 65 Year
  Sex: Female

DRUGS (5)
  1. TRIMEDAL (NCH)(VITAMIN C, TROXERUTIN, ACETAMINOPHEN (PARACETAMOL), PHE [Suspect]
     Indication: INFLUENZA
     Dosage: 1 DF, Q8H, ORAL
     Route: 048
  2. BEROTEC [Suspect]
  3. MUCOSOLVAN(AMBROXOL HYDROCHLORIDE) [Suspect]
  4. ATENOLOL W/HYDROCHLOROTHIAZIDE (ATENOLOL, HYDROCHLOROTHIAZIDE) [Concomitant]
  5. XALATAN [Concomitant]

REACTIONS (5)
  - DIZZINESS [None]
  - HEADACHE [None]
  - RETCHING [None]
  - TACHYCARDIA [None]
  - TREMOR [None]
